FAERS Safety Report 5610457-6 (Version None)
Quarter: 2008Q1

REPORT INFORMATION
  Report Type: 
  Country: None (occurrence: None)
  Receive Date: 20080128
  Receipt Date: 20080107
  Transmission Date: 20080703
  Serious: Yes (Hospitalization)
  Sender: FDA-Public Use
  Company Number: 2008S1000302

PATIENT
  Age: 64 Year
  Sex: Male

DRUGS (5)
  1. SIMVASTATIN [Suspect]
     Indication: HYPERLIPIDAEMIA
  2. CYCLOSPORINE [Suspect]
  3. DILTIAZEM [Suspect]
  4. FUROSEMIDE [Suspect]
  5. ANGIOTENSIN II ANTAGONISTS [Suspect]

REACTIONS (6)
  - DIARRHOEA [None]
  - OEDEMA [None]
  - RENAL FAILURE ACUTE [None]
  - RENAL TUBULAR DISORDER [None]
  - RHABDOMYOLYSIS [None]
  - WEIGHT INCREASED [None]
